FAERS Safety Report 4509671-2 (Version None)
Quarter: 2004Q4

REPORT INFORMATION
  Report Type: 
  Country: None (occurrence: None)
  Receive Date: 20041119
  Receipt Date: 20041103
  Transmission Date: 20050328
  Serious: Yes (Other)
  Sender: FDA-Public Use
  Company Number: USA041183095

PATIENT
  Age: 64 Year
  Sex: Female
  Weight: 68 kg

DRUGS (9)
  1. FORTEO [Suspect]
     Indication: OSTEOPOROSIS
     Dosage: 20 UG/1 DAY
     Dates: start: 20040429
  2. METHOTREXATE [Concomitant]
  3. PLAQUENIL [Concomitant]
  4. ATIVAN [Concomitant]
  5. AMBIEN [Concomitant]
  6. MAXZIDE [Concomitant]
  7. NEXIUM [Concomitant]
  8. FOLIC ACID [Concomitant]
  9. CALCIUM [Concomitant]

REACTIONS (4)
  - BASAL CELL CARCINOMA [None]
  - NAUSEA [None]
  - PAIN [None]
  - PHARMACEUTICAL PRODUCT COMPLAINT [None]
